FAERS Safety Report 11123213 (Version 1)
Quarter: 2015Q2

REPORT INFORMATION
  Report Type: Other
  Country: GB (occurrence: GB)
  Receive Date: 20150519
  Receipt Date: 20150519
  Transmission Date: 20150821
  Serious: Yes (Hospitalization, Disabling)
  Sender: FDA-Public Use
  Company Number: GB-PERRIGO-15GB004864

PATIENT
  Age: 33 Year
  Sex: Male

DRUGS (1)
  1. NAPROXEN 250MG 16028/0144 [Suspect]
     Active Substance: NAPROXEN
     Indication: MUSCULOSKELETAL PAIN
     Dosage: 500 MG, BID
     Route: 048
     Dates: start: 20131013, end: 20131113

REACTIONS (2)
  - Inflammatory bowel disease [Unknown]
  - Crohn^s disease [Unknown]
